FAERS Safety Report 9182045 (Version 1)
Quarter: 2012Q4

REPORT INFORMATION
  Report Type: 
  Country: DE (occurrence: IT)
  Receive Date: 20121030
  Receipt Date: 20121030
  Transmission Date: 20130627
  Serious: Yes (Other)
  Sender: FDA-Public Use
  Company Number: IT-BRISTOL-MYERS SQUIBB COMPANY-17075276

PATIENT

DRUGS (3)
  1. ERBITUX [Suspect]
     Indication: COLON CANCER
     Dosage: 1DF:439.39 units NOS
     Dates: start: 20100210, end: 20100805
  2. IRINOTECAN [Concomitant]
     Dosage: 1DF:140.26 units NOS
     Route: 042
     Dates: start: 20100210, end: 20100804
  3. FLUOROURACIL [Concomitant]
     Dosage: 1DF:3057.19 units NOS
     Route: 042
     Dates: start: 20100210, end: 20100728

REACTIONS (5)
  - Ulcerative keratitis [Recovering/Resolving]
  - Mucosal inflammation [Recovering/Resolving]
  - Conjunctival hyperaemia [Recovering/Resolving]
  - Scleral hyperaemia [Recovering/Resolving]
  - Rash [Recovering/Resolving]
